FAERS Safety Report 10438225 (Version 2)
Quarter: 2014Q3

REPORT INFORMATION
  Report Type: Spontaneous
  Country: US (occurrence: US)
  Receive Date: 20140908
  Receipt Date: 20140908
  Transmission Date: 20150326
  Serious: No
  Sender: FDA-Public Use
  Company Number: US-BRISTOL-MYERS SQUIBB COMPANY-19131739

PATIENT
  Age: 54 Year
  Sex: Female
  Weight: 65.76 kg

DRUGS (17)
  1. FOSAMAX [Concomitant]
     Active Substance: ALENDRONATE SODIUM
  2. PROZAC [Suspect]
     Active Substance: FLUOXETINE HYDROCHLORIDE
     Indication: DEPRESSION
     Dates: start: 20130625, end: 20130716
  3. SIMVASTATIN. [Concomitant]
     Active Substance: SIMVASTATIN
  4. PREDNISONE. [Concomitant]
     Active Substance: PREDNISONE
  5. METOCLOPRAMIDE. [Concomitant]
     Active Substance: METOCLOPRAMIDE
  6. CELLCEPT [Concomitant]
     Active Substance: MYCOPHENOLATE MOFETIL\MYCOPHENOLATE MOFETIL HYDROCHLORIDE
  7. TRAMADOL [Concomitant]
     Active Substance: TRAMADOL
  8. CALCIUM [Concomitant]
     Active Substance: CALCIUM
  9. HUMALOG [Concomitant]
     Active Substance: INSULIN LISPRO
  10. VITAMINS [Concomitant]
     Active Substance: VITAMINS
  11. ABILIFY [Suspect]
     Active Substance: ARIPIPRAZOLE
     Indication: DEPRESSION
     Dates: start: 20130625, end: 20130715
  12. RAPAMUNE [Concomitant]
     Active Substance: SIROLIMUS
  13. TOPROL XL [Concomitant]
     Active Substance: METOPROLOL SUCCINATE
  14. COUMADIN [Concomitant]
     Active Substance: WARFARIN SODIUM
  15. PROZAC [Concomitant]
     Active Substance: FLUOXETINE HYDROCHLORIDE
  16. BABY ASPIRIN [Concomitant]
     Active Substance: ASPIRIN
  17. VITAMIN B COMPLEX [Concomitant]
     Active Substance: CYANOCOBALAMIN\DEXPANTHENOL\NIACINAMIDE\PYRIDOXINE HYDROCHLORIDE\RIBOFLAVIN 5^-PHOSPHATE SODIUM\THIAMINE HYDROCHLORIDE\VITAMIN B COMPLEX

REACTIONS (10)
  - Pain [Recovered/Resolved]
  - Chills [Recovered/Resolved]
  - Oxygen saturation decreased [Recovered/Resolved]
  - Drug administration error [Unknown]
  - Pyrexia [Recovered/Resolved]
  - Gingival pain [Unknown]
  - Somnolence [Recovered/Resolved]
  - Dyspnoea [Recovered/Resolved]
  - Blood pressure increased [Unknown]
  - Off label use [Unknown]

NARRATIVE: CASE EVENT DATE: 20130708
